FAERS Safety Report 10445838 (Version 3)
Quarter: 2014Q3

REPORT INFORMATION
  Report Type: Spontaneous
  Country: GB (occurrence: GB)
  Receive Date: 20140910
  Receipt Date: 20140925
  Transmission Date: 20150326
  Serious: Yes (Death, Life-Threatening, Hospitalization, Disabling, Other)
  Sender: FDA-Public Use
  Company Number: GB-B.I. PHARMACEUTICALS,INC./RIDGEFIELD-2014-BI-42403UK

PATIENT
  Age: 93 Year
  Sex: Female

DRUGS (1)
  1. PRADAXA [Suspect]
     Active Substance: DABIGATRAN ETEXILATE MESYLATE
     Indication: PRODUCT USED FOR UNKNOWN INDICATION
     Route: 065

REACTIONS (4)
  - Bronchopneumonia [Fatal]
  - Myocardial infarction [Recovered/Resolved with Sequelae]
  - Gastrointestinal haemorrhage [Recovered/Resolved]
  - Cardiac failure [Unknown]
